FAERS Safety Report 4669536-2 (Version None)
Quarter: 2005Q2

REPORT INFORMATION
  Report Type: 
  Country: None (occurrence: None)
  Receive Date: 20050520
  Receipt Date: 20050508
  Transmission Date: 20051028
  Serious: Yes (Other)
  Sender: FDA-Public Use
  Company Number: 2005072871

PATIENT
  Sex: Female

DRUGS (2)
  1. VISINE TEARS PRESERVATIVE FREE (GLYCERIN, POLYETHYLENE GLYCOL, HYDROXY [Suspect]
     Indication: DRY EYE
     Dosage: OPHTHALMIC
     Route: 047
  2. CORTICOSTEROID NOS (CORTICOSTEROID NOS) [Suspect]
     Dosage: OPHTHALMIC
     Route: 047

REACTIONS (2)
  - MELANOSIS [None]
  - OCULAR NEOPLASM [None]
